FAERS Safety Report 7803244-1 (Version None)
Quarter: 2011Q4

REPORT INFORMATION
  Report Type: 
  Country: None (occurrence: None)
  Receive Date: 20111007
  Receipt Date: 20110927
  Transmission Date: 20120403
  Serious: Yes (Other)
  Sender: FDA-Public Use
  Company Number: US-EISAI INC-E3810-04981-SPO-US

PATIENT
  Sex: Female

DRUGS (2)
  1. ALENDRONATE SODIUM [Concomitant]
  2. RABEPRAZOLE SODIUM [Suspect]
     Indication: OESOPHAGITIS
     Route: 048
     Dates: start: 20100903

REACTIONS (1)
  - CONJUNCTIVAL HAEMORRHAGE [None]
